FAERS Safety Report 9512652 (Version 1)
Quarter: 2013Q1

REPORT INFORMATION
  Report Type: Spontaneous
  Country: US (occurrence: None)
  Receive Date: 20130305
  Receipt Date: 20130305
  Transmission Date: 20140127
  Serious: Yes (Other)
  Sender: FDA-Public Use
  Company Number: 163-21880-12061818

PATIENT
  Age: 69 Year
  Sex: Female

DRUGS (3)
  1. REVLIMID (LENALIDOMIDE) (15 MILLIGRAM, CAPSULES) [Suspect]
     Indication: PLASMA CELL MYELOMA
     Dosage: 15 MG, QD X 21 DAYS/OFF 7 DAYS, PO
     Route: 048
     Dates: start: 20111230
  2. ASA (ACETYLSALICYLIC ACID) (UNKNOWN) [Concomitant]
  3. NEUPOGEN (FILGRASTIM) (INJECTION) [Concomitant]

REACTIONS (2)
  - Anaemia [None]
  - Enzyme abnormality [None]
